FAERS Safety Report 10164459 (Version 1)
Quarter: 2014Q2

REPORT INFORMATION
  Report Type: Spontaneous
  Country: US (occurrence: US)
  Receive Date: 20140510
  Receipt Date: 20140510
  Transmission Date: 20141212
  Serious: No
  Sender: FDA-Public Use
  Company Number: US-BRISTOL-MYERS SQUIBB COMPANY-19524594

PATIENT
  Age: 54 Year
  Sex: Male
  Weight: 126.98 kg

DRUGS (3)
  1. BYDUREON [Suspect]
     Route: 058
     Dates: end: 201310
  2. AMARYL [Concomitant]
  3. METFORMIN [Concomitant]

REACTIONS (2)
  - Drug dose omission [Unknown]
  - Product quality issue [Unknown]
